FAERS Safety Report 8563780 (Version 3)
Quarter: 2013Q2

REPORT INFORMATION
  Report Type: Report from Study
  Country: US (occurrence: US)
  Receive Date: 20120515
  Receipt Date: 20130614
  Transmission Date: 20140414
  Serious: Yes (Death, Life-Threatening, Hospitalization, Other)
  Sender: FDA-Public Use
  Company Number: US-PFIZER INC-2012113579

PATIENT
  Age: 25 Year
  Sex: Male
  Weight: 104.2 kg

DRUGS (20)
  1. INOTUZUMAB OZOGAMICIN [Suspect]
     Indication: ACUTE LYMPHOCYTIC LEUKAEMIA
     Dosage: 0.4 MG/M2, 3 WEEKLY DOSES
     Route: 042
     Dates: start: 20120214, end: 20120404
  2. SIROLIMUS [Suspect]
     Dosage: UNK
  3. ACETYLCYSTEINE [Concomitant]
     Dosage: 1.2 G, 2X/DAY EVERY 12 HOURS IVPB
     Route: 042
     Dates: start: 20120430
  4. ACYCLOVIR [Concomitant]
     Indication: ANTIVIRAL TREATMENT
     Dosage: 500 MG, 2X/DAY EVERY 12 HOURS IVPB
     Route: 042
     Dates: start: 20120501
  5. CHLORHEXIDINE [Concomitant]
     Indication: THERAPEUTIC GARGLE
     Dosage: 15 ML, 4X/DAY
     Route: 061
     Dates: start: 20120416
  6. FILGRASTIM [Concomitant]
     Indication: PLATELET-DERIVED GROWTH FACTOR RECEPTOR OVEREXPRESSION
     Dosage: 480 MCG, 1X/DAY
     Route: 058
     Dates: start: 20120424
  7. VASOPRESSIN (BIOMARKER) [Concomitant]
     Indication: HYPOTENSION
     Dosage: 0.03 UNITS MINITE
     Route: 042
     Dates: start: 20120501
  8. MEROPENEM [Concomitant]
     Indication: ANTIBIOTIC THERAPY
     Dosage: 1 G, 3X/DAY EVERY 8 HOURS
     Route: 042
     Dates: start: 20120501
  9. MICAFUNGIN [Concomitant]
     Indication: ANTIFUNGAL TREATMENT
     Dosage: 100 MG, 1X/DAY
     Route: 042
     Dates: start: 20120429
  10. NOREPINEPHRINE [Concomitant]
     Indication: HYPOTENSION
     Dosage: 30.0 MCG MIN
     Route: 042
     Dates: start: 20120502
  11. METRONIDAZOLE [Concomitant]
     Indication: DIARRHOEA
     Dosage: 500 MG, 4X/DAY
     Route: 042
     Dates: start: 20120505
  12. METRONIDAZOLE [Concomitant]
     Indication: FUNGAL INFECTION
  13. NORVASC [Concomitant]
     Indication: HYPERTENSION
     Dosage: 10 MG, 1X/DAY
     Route: 048
  14. NEXIUM [Concomitant]
     Indication: ANTACID THERAPY
     Dosage: 40 MG, 1X/DAY
     Route: 048
  15. FENTANYL [Concomitant]
     Indication: PAIN
     Dosage: 50 MCG, 2X/DAY EVERY 12 HOURS
     Route: 061
  16. GABAPENTIN [Concomitant]
     Indication: PAIN
     Dosage: 600 MG, UNK
     Route: 048
  17. HYDROMORPHONE [Concomitant]
     Indication: PAIN
     Dosage: 8 MG, 3X/DAY
     Route: 048
  18. MIRALAX [Concomitant]
     Indication: CONSTIPATION
     Dosage: 17 G, 1X/DAY
     Route: 048
  19. URSODIOL [Concomitant]
     Indication: CHOLELITHIASIS
     Dosage: 300 MG, 1X/DAY
     Route: 048
  20. SULFAMETHOXAZOLE [Concomitant]
     Indication: ANTIFUNGAL PROPHYLAXIS
     Dosage: UNK, 1X/DAY
     Route: 048

REACTIONS (1)
  - Septic shock [Fatal]
